FAERS Safety Report 22006144 (Version 1)
Quarter: 2023Q1

REPORT INFORMATION
  Report Type: Spontaneous
  Country: US (occurrence: US)
  Receive Date: 20230217
  Receipt Date: 20230217
  Transmission Date: 20230417
  Serious: No
  Sender: FDA-Public Use
  Company Number: US-SA-SAC20230215000681

PATIENT
  Sex: Female

DRUGS (2)
  1. DUPIXENT [Suspect]
     Active Substance: DUPILUMAB
     Indication: Dermatitis atopic
  2. CIBINQO [Concomitant]
     Active Substance: ABROCITINIB
     Dosage: 100 MG, QD
     Dates: start: 202209

REACTIONS (3)
  - Rash [Unknown]
  - Rash pruritic [Unknown]
  - Groin pain [Unknown]
